FAERS Safety Report 11374691 (Version 1)
Quarter: 2015Q3

REPORT INFORMATION
  Report Type: Spontaneous
  Country: FR (occurrence: FR)
  Receive Date: 20150813
  Receipt Date: 20150813
  Transmission Date: 20151125
  Serious: Yes (Hospitalization)
  Sender: FDA-Public Use
  Company Number: FR-009507513-1508FRA001982

PATIENT
  Age: 71 Year
  Sex: Male

DRUGS (8)
  1. PREVISCAN [Concomitant]
     Active Substance: FLUINDIONE
     Dosage: UNKNOWN
  2. CRESTOR [Concomitant]
     Active Substance: ROSUVASTATIN CALCIUM
     Dosage: UNKNOWN
  3. STILNOX [Suspect]
     Active Substance: ZOLPIDEM TARTRATE
     Indication: SLEEP DISORDER
     Dosage: 1 DF, QD (ONCE DAILY)
     Route: 048
  4. NORSET [Suspect]
     Active Substance: MIRTAZAPINE
     Dosage: 2 DF, QD (ONCE DAILY)
     Route: 048
     Dates: start: 20150309, end: 20150311
  5. DUOPLAVIN [Concomitant]
     Active Substance: ASPIRIN\CLOPIDOGREL
     Dosage: UNKNOWN
  6. XANAX [Suspect]
     Active Substance: ALPRAZOLAM
     Indication: ANXIETY
     Dosage: 8 DF, QD (ONCE DAILY) (0.25 MEDICATION WAS INITIATED AT 2/DAY)
     Route: 048
     Dates: start: 20150308, end: 20150311
  7. LASILIX [Concomitant]
     Active Substance: FUROSEMIDE
     Dosage: UNKNOWN
  8. TRIATEC (ACETAMINOPHEN (+) CAFFEINE, CITRATED (+) CODEINE PHOSPHATE) [Concomitant]
     Dosage: UNKNOWN

REACTIONS (2)
  - Coma [Recovered/Resolved]
  - Acute respiratory failure [Recovered/Resolved]

NARRATIVE: CASE EVENT DATE: 20150312
